FAERS Safety Report 24859773 (Version 1)
Quarter: 2025Q1

REPORT INFORMATION
  Report Type: Report from Study
  Country: FR (occurrence: FR)
  Receive Date: 20250119
  Receipt Date: 20250119
  Transmission Date: 20250408
  Serious: Yes (Other)
  Sender: ABBVIE
  Company Number: FR-ABBVIE-6085398

PATIENT
  Age: 71 Year
  Sex: Male

DRUGS (1)
  1. FOSCARBIDOPA\FOSLEVODOPA [Suspect]
     Active Substance: FOSCARBIDOPA\FOSLEVODOPA
     Indication: Product used for unknown indication
     Route: 058
     Dates: start: 20240106

REACTIONS (4)
  - Resting tremor [Not Recovered/Not Resolved]
  - Infusion site erythema [Recovering/Resolving]
  - Infusion site induration [Recovering/Resolving]
  - Abdominal pain [Not Recovered/Not Resolved]

NARRATIVE: CASE EVENT DATE: 20250101
